FAERS Safety Report 4891855-5 (Version None)
Quarter: 2006Q1

REPORT INFORMATION
  Report Type: 
  Country: None (occurrence: None)
  Receive Date: 20060123
  Receipt Date: 20060110
  Transmission Date: 20060701
  Serious: Yes (Hospitalization)
  Sender: FDA-Public Use
  Company Number: 2006_000003

PATIENT
  Age: 73 Year
  Sex: Female

DRUGS (2)
  1. DEPOCYT [Suspect]
     Indication: MENINGIOMA MALIGNANT
     Dosage: X1; INTH
     Dates: start: 20060107, end: 20060107
  2. VINORELBINE TARTRATE [Concomitant]

REACTIONS (6)
  - APATHY [None]
  - BREAST CANCER METASTATIC [None]
  - DISORIENTATION [None]
  - MALIGNANT NEOPLASM PROGRESSION [None]
  - PERSONALITY CHANGE [None]
  - VOMITING [None]
